FAERS Safety Report 8576460 (Version 2)
Quarter: 2013Q1

REPORT INFORMATION
  Report Type: Report from Study
  Country: US (occurrence: US)
  Receive Date: 20120523
  Receipt Date: 20130315
  Transmission Date: 20140127
  Serious: Yes (Hospitalization, Other)
  Sender: FDA-Public Use
  Company Number: US-ABBOTT-12P-163-0933767-00

PATIENT
  Age: 54 None
  Sex: Male

DRUGS (8)
  1. HUMIRA 40 MG/0.8 ML PEN [Suspect]
     Indication: CROHN^S DISEASE
     Route: 058
     Dates: start: 2010, end: 2011
  2. HUMIRA 40 MG/0.8 ML PEN [Suspect]
     Dosage: WEEK 1
     Dates: start: 201204
  3. HUMIRA 40 MG/0.8 ML PEN [Suspect]
     Dosage: WEEK 2
  4. HUMIRA 40 MG/0.8 ML PEN [Suspect]
  5. 6-MP [Concomitant]
     Indication: CROHN^S DISEASE
  6. VITAMIN B12 [Concomitant]
     Indication: VITAMIN SUPPLEMENTATION
  7. COLESTID [Concomitant]
     Indication: DIARRHOEA
  8. COLESTID [Concomitant]
     Indication: CROHN^S DISEASE

REACTIONS (11)
  - Dizziness [Recovering/Resolving]
  - Cardiac disorder [Unknown]
  - Palpitations [Recovering/Resolving]
  - Chest discomfort [Unknown]
  - Chest discomfort [Unknown]
  - Dyspnoea [Recovering/Resolving]
  - Chest pain [Unknown]
  - Drug ineffective [Unknown]
  - Dyspnoea [Recovering/Resolving]
  - Pain in extremity [Recovered/Resolved]
  - Conduction disorder [Not Recovered/Not Resolved]
